FAERS Safety Report 11253408 (Version 1)
Quarter: 2015Q3

REPORT INFORMATION
  Report Type: Spontaneous
  Country: IT (occurrence: None)
  Receive Date: 20150707
  Receipt Date: 20150707
  Transmission Date: 20151125
  Serious: Yes (Other)
  Sender: FDA-Public Use
  Company Number: IT2015GSK095215

PATIENT
  Sex: Female

DRUGS (2)
  1. ZIDOVUDINE (ZIDOVUDINE) UNKNOWN) [Suspect]
     Active Substance: ZIDOVUDINE
     Indication: HIV INFECTION
  2. IBUPROFEN. [Concomitant]
     Active Substance: IBUPROFEN

REACTIONS (5)
  - Hypoxia [None]
  - Cytomegalovirus infection [None]
  - Pulmonary hypertension [None]
  - Oxygen consumption increased [None]
  - Tricuspid valve incompetence [None]
